FAERS Safety Report 22586932 (Version 2)
Quarter: 2023Q2

REPORT INFORMATION
  Report Type: Spontaneous
  Country: JP (occurrence: JP)
  Receive Date: 20230612
  Receipt Date: 20230612
  Transmission Date: 20230722
  Serious: Yes (Death, Other)
  Sender: FDA-Public Use
  Company Number: JP-MSD-M2023-15932

PATIENT
  Age: 84 Year
  Sex: Male

DRUGS (3)
  1. CUBICIN [Suspect]
     Active Substance: DAPTOMYCIN
     Indication: Staphylococcal infection
     Dosage: UNK
     Route: 041
  2. CUBICIN [Suspect]
     Active Substance: DAPTOMYCIN
     Dosage: EVERY OTHER DAY
     Route: 041
     Dates: start: 20230419
  3. VANCOMYCIN HYDROCHLORIDE [Concomitant]
     Active Substance: VANCOMYCIN HYDROCHLORIDE
     Indication: Staphylococcal infection
     Dosage: UNK
     Route: 065

REACTIONS (6)
  - Blood creatinine increased [Fatal]
  - Blood urea increased [Fatal]
  - Sepsis [Unknown]
  - Dehydration [Unknown]
  - Pyrexia [Unknown]
  - Product use issue [Unknown]

NARRATIVE: CASE EVENT DATE: 20230401
